FAERS Safety Report 12190909 (Version 2)
Quarter: 2016Q2

REPORT INFORMATION
  Report Type: Spontaneous
  Country: IT (occurrence: IT)
  Receive Date: 20160318
  Receipt Date: 20160420
  Transmission Date: 20160815
  Serious: Yes (Hospitalization)
  Sender: FDA-Public Use
  Company Number: IT-SUN PHARMACEUTICAL INDUSTRIES LTD-2016RR-113498

PATIENT

DRUGS (2)
  1. PARACETAMOL [Suspect]
     Active Substance: ACETAMINOPHEN
     Indication: SELF INJURIOUS BEHAVIOUR
     Dosage: 5000 MG, DAILY
     Route: 048
     Dates: start: 20150918, end: 20150918
  2. NIMESULIDE [Suspect]
     Active Substance: NIMESULIDE
     Indication: INTENTIONAL SELF-INJURY
     Dosage: 100 MG, DAILY
     Route: 048
     Dates: start: 20150918, end: 20150918

REACTIONS (3)
  - Tachycardia [Recovering/Resolving]
  - Dysphoria [Recovering/Resolving]
  - Psychomotor hyperactivity [Recovering/Resolving]

NARRATIVE: CASE EVENT DATE: 20150918
